FAERS Safety Report 8585130 (Version 2)
Quarter: 2012Q4

REPORT INFORMATION
  Report Type: 
  Country: CA (occurrence: CA)
  Receive Date: 20120530
  Receipt Date: 20120912
  Transmission Date: 20130627
  Serious: Yes (Hospitalization)
  Sender: FDA-Public Use
  Company Number: CA-SANOFI-AVENTIS-2012SA037324

PATIENT
  Age: 60 Year
  Sex: Male
  Weight: 53 kg

DRUGS (9)
  1. DDAVP [Suspect]
     Indication: ENURESIS
     Route: 065
     Dates: start: 20110923, end: 20111003
  2. CLOMIPRAMINE [Concomitant]
     Route: 048
     Dates: end: 20110922
  3. CLOMIPRAMINE [Concomitant]
     Route: 048
     Dates: start: 20110923
  4. CLONAZEPAM [Concomitant]
  5. LOPERAMIDE [Concomitant]
  6. OLANZAPINE [Concomitant]
     Dosage: 10mg in am and 15 mg in hs.
  7. OXYBUTYNIN [Concomitant]
  8. PANTOPRAZOLE [Concomitant]
  9. PROPRANOLOL [Concomitant]

REACTIONS (5)
  - Hyponatraemia [Recovered/Resolved]
  - General physical health deterioration [Recovered/Resolved]
  - Fall [Recovered/Resolved]
  - Blood creatine phosphokinase increased [Recovered/Resolved]
  - Blood osmolarity increased [Recovered/Resolved]
